FAERS Safety Report 6607062-1 (Version None)
Quarter: 2010Q1

REPORT INFORMATION
  Report Type: 
  Country: None (occurrence: None)
  Receive Date: 20100219
  Receipt Date: 20100204
  Transmission Date: 20100710
  Serious: Yes (Death)
  Sender: FDA-Public Use
  Company Number: 006646

PATIENT

DRUGS (2)
  1. METHYLPHENIDATE [Suspect]
  2. HUMAN PAPILLOMA VIRUS VACCINE [Suspect]

REACTIONS (3)
  - DRUG EXPOSURE DURING PREGNANCY [None]
  - PREGNANCY [None]
  - STILLBIRTH [None]
